FAERS Safety Report 6073054-7 (Version None)
Quarter: 2009Q1

REPORT INFORMATION
  Report Type: 
  Country: None (occurrence: None)
  Receive Date: 20090211
  Receipt Date: 20090206
  Transmission Date: 20090719
  Serious: Yes (Death, Other)
  Sender: FDA-Public Use
  Company Number: GB-BRISTOL-MYERS SQUIBB COMPANY-13895750

PATIENT
  Age: 36 Year
  Sex: Male
  Weight: 70 kg

DRUGS (6)
  1. FUNGIZONE [Suspect]
     Indication: HEPATIC CANDIDIASIS
     Dates: start: 20070720
  2. CAMPATH [Concomitant]
     Indication: CHRONIC LYMPHOCYTIC LEUKAEMIA REFRACTORY
     Route: 042
  3. METHYLPREDNISOLONE 4MG TAB [Concomitant]
     Indication: CHRONIC LYMPHOCYTIC LEUKAEMIA REFRACTORY
     Route: 042
  4. CASPOFUNGIN ACETATE [Concomitant]
     Indication: HEPATIC CANDIDIASIS
     Route: 042
     Dates: start: 20070718, end: 20070720
  5. GANCICLOVIR [Concomitant]
     Indication: CYTOMEGALOVIRUS INFECTION
     Route: 042
     Dates: start: 20070601
  6. TAZOCIN [Concomitant]
     Indication: FEBRILE NEUTROPENIA
     Route: 042
     Dates: start: 20070716, end: 20070719

REACTIONS (5)
  - CARDIAC ARREST [None]
  - ELECTROMECHANICAL DISSOCIATION [None]
  - MEDICATION ERROR [None]
  - MUSCULAR WEAKNESS [None]
  - OVERDOSE [None]
